FAERS Safety Report 9046862 (Version 2)
Quarter: 2013Q2

REPORT INFORMATION
  Report Type: Spontaneous
  Country: JP (occurrence: JP)
  Receive Date: 20130204
  Receipt Date: 20130503
  Transmission Date: 20140414
  Serious: Yes (Life-Threatening, Hospitalization, Other)
  Sender: FDA-Public Use
  Company Number: JP-AMGEN-JPNSP2013007158

PATIENT
  Age: 63 Year
  Sex: Male
  Weight: 66 kg

DRUGS (11)
  1. RANMARK [Suspect]
     Indication: METASTASES TO BONE
     Dosage: 120 MG, QMO
     Route: 058
     Dates: start: 20121119, end: 20121211
  2. RANMARK [Suspect]
     Indication: LUNG NEOPLASM MALIGNANT
     Route: 058
     Dates: start: 20121119, end: 20121119
  3. IRESSA [Suspect]
     Indication: LUNG ADENOCARCINOMA
     Route: 048
     Dates: start: 20121106, end: 20121211
  4. OXYCONTIN [Concomitant]
     Indication: PAIN
     Route: 048
     Dates: start: 20121105, end: 20121221
  5. CLINORIL [Concomitant]
     Indication: PAIN
     Route: 048
     Dates: start: 20121116
  6. SELTEPNON [Concomitant]
     Indication: GASTRITIS
     Route: 048
     Dates: start: 20121106
  7. NOVAMIN [Concomitant]
     Indication: PROPHYLAXIS OF NAUSEA AND VOMITING
     Route: 048
     Dates: start: 20121106, end: 20121214
  8. CALCIUM LACTATE [Concomitant]
     Indication: PROPHYLAXIS
     Route: 048
     Dates: start: 20121119
  9. PANVITAN [Concomitant]
     Indication: PROPHYLAXIS
     Route: 048
     Dates: start: 20121119
  10. NEUTROGIN [Concomitant]
     Dosage: 100 MUG, UNK
     Dates: start: 20121214
  11. AVELOX [Concomitant]
     Dosage: 400 MUG, QD
     Dates: start: 20121214, end: 20121217

REACTIONS (2)
  - Neutropenia [Recovering/Resolving]
  - Hepatic function abnormal [Recovered/Resolved]
